FAERS Safety Report 9467918 (Version 4)
Quarter: 2013Q4

REPORT INFORMATION
  Report Type: Spontaneous
  Country: US (occurrence: US)
  Receive Date: 20130821
  Receipt Date: 20131227
  Transmission Date: 20140711
  Serious: Yes (Other)
  Sender: FDA-Public Use
  Company Number: US-PFIZER INC-2013241651

PATIENT
  Age: 49 Year
  Sex: Female
  Weight: 83.45 kg

DRUGS (2)
  1. LYRICA [Suspect]
     Indication: NERVE INJURY
     Dosage: 300 MG, 2X/DAY
     Dates: end: 2013
  2. LYRICA [Suspect]
     Indication: FIBROMYALGIA

REACTIONS (5)
  - Systemic lupus erythematosus [Unknown]
  - Malaise [Unknown]
  - Fibromyalgia [Unknown]
  - Feeling abnormal [Unknown]
  - Pain [Unknown]
